FAERS Safety Report 8366487-7 (Version None)
Quarter: 2012Q2

REPORT INFORMATION
  Report Type: 
  Country: None (occurrence: None)
  Receive Date: 20120517
  Receipt Date: 20120509
  Transmission Date: 20120825
  Serious: Yes (Other)
  Sender: FDA-Public Use
  Company Number: IL-SANOFI-AVENTIS-2012SA034049

PATIENT
  Sex: Female

DRUGS (2)
  1. ARAVA [Suspect]
     Route: 065
  2. ARAVA [Suspect]
     Route: 065

REACTIONS (1)
  - PANCREATITIS RELAPSING [None]
